FAERS Safety Report 15107485 (Version 4)
Quarter: 2018Q3

REPORT INFORMATION
  Report Type: Spontaneous
  Country: FI (occurrence: FI)
  Receive Date: 20180704
  Receipt Date: 20180907
  Transmission Date: 20181010
  Serious: Yes (Other)
  Sender: FDA-Public Use
  Company Number: FI-009507513-1806FIN011508

PATIENT
  Sex: Male

DRUGS (1)
  1. SINEMET [Suspect]
     Active Substance: CARBIDOPA\LEVODOPA
     Indication: PARKINSON^S DISEASE
     Dosage: 25MG/100MG, 3 TABLETS PER DAY
     Route: 048
     Dates: start: 2005

REACTIONS (6)
  - Transient ischaemic attack [Unknown]
  - Malignant melanoma [Unknown]
  - Pharyngeal erythema [Unknown]
  - Throat tightness [Unknown]
  - Dyspepsia [Unknown]
  - Insomnia [Unknown]

NARRATIVE: CASE EVENT DATE: 20180716
